FAERS Safety Report 21732965 (Version 2)
Quarter: 2022Q4

REPORT INFORMATION
  Report Type: Spontaneous
  Country: US (occurrence: US)
  Receive Date: 20221215
  Receipt Date: 20221221
  Transmission Date: 20230113
  Serious: No
  Sender: FDA-Public Use
  Company Number: US-SA-SAC20221214000154

PATIENT
  Age: 62 Year
  Sex: Female

DRUGS (1)
  1. DUPIXENT [Suspect]
     Active Substance: DUPILUMAB
     Dosage: 200 MG (FREQUENCY: OTHER)
     Route: 058

REACTIONS (10)
  - Gastrooesophageal reflux disease [Unknown]
  - Headache [Unknown]
  - Mouth ulceration [Unknown]
  - Paraesthesia [Unknown]
  - Secretion discharge [Unknown]
  - Dysphonia [Unknown]
  - Tongue ulceration [Unknown]
  - Swelling [Unknown]
  - Oropharyngeal pain [Unknown]
  - Arthralgia [Unknown]

NARRATIVE: CASE EVENT DATE: 20221201
